FAERS Safety Report 16386736 (Version 4)
Quarter: 2021Q1

REPORT INFORMATION
  Report Type: Spontaneous
  Country: CA (occurrence: CA)
  Receive Date: 20190604
  Receipt Date: 20210324
  Transmission Date: 20210419
  Serious: Yes (Hospitalization, Other)
  Sender: FDA-Public Use
  Company Number: CA-AUROBINDO-AUR-APL-2019-029952

PATIENT
  Age: 70 Year
  Sex: Female

DRUGS (18)
  1. AMANTADINE. [Suspect]
     Active Substance: AMANTADINE HYDROCHLORIDE
     Indication: PARKINSON^S DISEASE
  2. NABILONE [Suspect]
     Active Substance: NABILONE
     Indication: PARKINSON^S DISEASE
     Dosage: 2 DOSAGE FORM, ONCE A DAY
     Route: 048
  3. CLOZAPINE. [Suspect]
     Active Substance: CLOZAPINE
     Indication: PARKINSON^S DISEASE
     Dosage: 37.5 MILLIGRAM, ONCE A DAY
     Route: 065
  4. ENTACAPONE TABLET [Suspect]
     Active Substance: ENTACAPONE
     Indication: PARKINSONISM
     Dosage: 1000 MILLIGRAM, ONCE A DAY
     Route: 065
  5. PRAMIPEXOLE. [Suspect]
     Active Substance: PRAMIPEXOLE
     Indication: PARKINSONISM
     Dosage: 1.5 MILLIGRAM, ONCE A DAY
     Route: 065
  6. FLUDROCORTISONE [Suspect]
     Active Substance: FLUDROCORTISONE
     Indication: PSYCHOTIC DISORDER
     Dosage: 0.1 MILLIGRAM, ONCE A DAY
     Route: 065
  7. FLUDROCORTISONE [Suspect]
     Active Substance: FLUDROCORTISONE
     Indication: PARKINSON^S DISEASE
  8. PRAMIPEXOLE. [Suspect]
     Active Substance: PRAMIPEXOLE
     Indication: PARKINSON^S DISEASE
     Dosage: 0.75 MILLIGRAM, ONCE A DAY
     Route: 065
  9. QUETIAPINE FILM?COATED TABLET [Suspect]
     Active Substance: QUETIAPINE
     Indication: PSYCHOTIC DISORDER
     Dosage: 12.5 MILLIGRAM, ONCE A DAY
     Route: 048
  10. AMANTADINE. [Suspect]
     Active Substance: AMANTADINE HYDROCHLORIDE
     Indication: PSYCHOTIC DISORDER
  11. CARBIDOPA;LEVODOPA [Suspect]
     Active Substance: CARBIDOPA\LEVODOPA
     Indication: PARKINSONISM
     Dosage: 1000250 MILLIGRAM, ONCE A DAY
     Route: 065
  12. NABILONE [Suspect]
     Active Substance: NABILONE
     Dosage: 1 MILLIGRAM
     Route: 048
  13. ENTACAPONE TABLET [Suspect]
     Active Substance: ENTACAPONE
     Indication: PARKINSON^S DISEASE
  14. PRAMIPEXOLE. [Suspect]
     Active Substance: PRAMIPEXOLE
     Dosage: 12.5 MILLIGRAM, ONCE A DAY
     Route: 065
  15. CLOZAPINE. [Suspect]
     Active Substance: CLOZAPINE
     Indication: PSYCHOTIC DISORDER
     Dosage: UNK
     Route: 065
  16. AMANTADINE. [Suspect]
     Active Substance: AMANTADINE HYDROCHLORIDE
     Indication: PARKINSONISM
     Dosage: 300 MILLIGRAM, ONCE A DAY
     Route: 065
  17. CARBIDOPA;LEVODOPA [Suspect]
     Active Substance: CARBIDOPA\LEVODOPA
     Indication: PARKINSON^S DISEASE
  18. PRAMIPEXOLE. [Suspect]
     Active Substance: PRAMIPEXOLE
     Dosage: 4.5 MILLIGRAM, ONCE A DAY
     Route: 065

REACTIONS (8)
  - Orthostatic hypertension [Unknown]
  - Therapeutic product effect incomplete [Unknown]
  - Dystonia [Recovering/Resolving]
  - Dyskinesia [Recovering/Resolving]
  - Acute psychosis [Recovering/Resolving]
  - Therapeutic response shortened [Recovering/Resolving]
  - Psychotic disorder [Recovering/Resolving]
  - Parkinson^s disease psychosis [Unknown]
